FAERS Safety Report 11709678 (Version 1)
Quarter: 2015Q4

REPORT INFORMATION
  Report Type: Spontaneous
  Country: US (occurrence: US)
  Receive Date: 20151104
  Receipt Date: 20151104
  Transmission Date: 20160304
  Serious: No
  Sender: FDA-Public Use
  Company Number: US-ELI_LILLY_AND_COMPANY-US201103007253

PATIENT
  Sex: Female

DRUGS (2)
  1. FORTEO [Suspect]
     Active Substance: TERIPARATIDE
     Dosage: UNK, QD
     Route: 065
  2. MORPHINE                           /00036301/ [Concomitant]
     Indication: PAIN

REACTIONS (6)
  - Vomiting [Unknown]
  - Blood glucose fluctuation [Unknown]
  - Nausea [Unknown]
  - Pain [Unknown]
  - Blood glucose increased [Unknown]
  - Adverse drug reaction [Unknown]
